FAERS Safety Report 9397467 (Version 1)
Quarter: 2013Q3

REPORT INFORMATION
  Report Type: Spontaneous
  Country: US (occurrence: None)
  Receive Date: 20130711
  Receipt Date: 20130711
  Transmission Date: 20140515
  Serious: Yes (Hospitalization)
  Sender: FDA-Public Use
  Company Number: None

PATIENT
  Age: 55 Year
  Sex: Male
  Weight: 77.3 kg

DRUGS (1)
  1. AVONEX PFS 30MCG BIOGEN [Suspect]
     Indication: MULTIPLE SCLEROSIS
     Dates: start: 2006

REACTIONS (1)
  - Pulmonary haemorrhage [None]
